FAERS Safety Report 9933426 (Version 2)
Quarter: 2014Q1

REPORT INFORMATION
  Report Type: Report from Study
  Country: US (occurrence: US)
  Receive Date: 20140228
  Receipt Date: 20140228
  Transmission Date: 20141002
  Serious: No
  Sender: FDA-Public Use
  Company Number: US-MYLANLABS-2013S1008978

PATIENT
  Age: 55 Year
  Sex: Female

DRUGS (1)
  1. AMNESTEEM CAPSULES [Suspect]
     Indication: ACNE
     Route: 048
     Dates: start: 20130411, end: 20130508

REACTIONS (4)
  - Oral herpes [Not Recovered/Not Resolved]
  - Chapped lips [Recovered/Resolved]
  - Skin exfoliation [Recovered/Resolved]
  - Lip dry [Recovered/Resolved]
